FAERS Safety Report 12997138 (Version 1)
Quarter: 2016Q4

REPORT INFORMATION
  Report Type: Report from Study
  Country: US (occurrence: US)
  Receive Date: 20161205
  Receipt Date: 20161205
  Transmission Date: 20170207
  Serious: No
  Sender: FDA-Public Use
  Company Number: US-AMGEN-USASL2016168221

PATIENT
  Sex: Female

DRUGS (1)
  1. ENBREL [Suspect]
     Active Substance: ETANERCEPT
     Indication: PRODUCT USED FOR UNKNOWN INDICATION
     Dosage: 50 MG, 2 TIMES/WK
     Route: 065

REACTIONS (6)
  - Eye pruritus [Unknown]
  - Injection site pruritus [Unknown]
  - Lip pruritus [Unknown]
  - Dyspnoea [Unknown]
  - Injection site erythema [Unknown]
  - Injection site swelling [Unknown]
